FAERS Safety Report 8581884 (Version 2)
Quarter: 2014Q1

REPORT INFORMATION
  Report Type: Spontaneous
  Country: US (occurrence: US)
  Receive Date: 20120528
  Receipt Date: 20140314
  Transmission Date: 20141002
  Serious: No
  Sender: FDA-Public Use
  Company Number: US-BIOGENIDEC-2012BI017688

PATIENT
  Age: 34 Year
  Sex: Female

DRUGS (6)
  1. AVONEX [Suspect]
     Indication: MULTIPLE SCLEROSIS
     Route: 030
  2. AVONEX [Suspect]
     Indication: MULTIPLE SCLEROSIS
     Route: 030
     Dates: start: 20020202, end: 20050202
  3. AVONEX [Suspect]
     Indication: MULTIPLE SCLEROSIS
     Route: 030
     Dates: start: 200702, end: 2011
  4. AVONEX [Suspect]
     Indication: MULTIPLE SCLEROSIS
     Route: 030
     Dates: start: 20120628, end: 20131128
  5. AVONEX [Suspect]
     Indication: MULTIPLE SCLEROSIS
     Route: 030
  6. ALEVE [Concomitant]
     Indication: PREMEDICATION
     Dates: end: 2011

REACTIONS (3)
  - Influenza like illness [Recovered/Resolved]
  - Pain [Recovered/Resolved]
  - Anxiety [Recovered/Resolved]
